FAERS Safety Report 25048626 (Version 1)
Quarter: 2025Q1

REPORT INFORMATION
  Report Type: Report from Study
  Country: US (occurrence: US)
  Receive Date: 20250307
  Receipt Date: 20250307
  Transmission Date: 20250409
  Serious: Yes (Other)
  Sender: SUNOVION
  Company Number: US-SMPA-2025SPA002580

PATIENT

DRUGS (3)
  1. ORGOVYX [Suspect]
     Active Substance: RELUGOLIX
     Indication: Prostate cancer
     Route: 048
  2. ORGOVYX [Suspect]
     Active Substance: RELUGOLIX
     Dosage: 120 MG, QD
     Route: 048
     Dates: start: 20240816
  3. XTANDI [Concomitant]
     Active Substance: ENZALUTAMIDE
     Indication: Prostate cancer
     Dosage: 160 MG, QD
     Route: 065
     Dates: start: 20240816

REACTIONS (7)
  - Neuropathy peripheral [Unknown]
  - Taste disorder [Unknown]
  - Sleep disorder [Unknown]
  - Muscle atrophy [Unknown]
  - Urinary tract disorder [Unknown]
  - Asthenia [Unknown]
  - Fatigue [Unknown]
